FAERS Safety Report 5263479-1 (Version None)
Quarter: 2007Q1

REPORT INFORMATION
  Report Type: 
  Country: None (occurrence: None)
  Receive Date: 20070313
  Receipt Date: 20070228
  Transmission Date: 20070707
  Serious: Yes (Hospitalization)
  Sender: FDA-Public Use
  Company Number: PHNR2007AU00752

PATIENT
  Age: 55 Year
  Sex: Male

DRUGS (3)
  1. EPILIM [Suspect]
     Dosage: 2 G DAILY
  2. TOPAMAX [Suspect]
     Dosage: 100 MG DAILY
  3. TEGRETOL [Suspect]
     Indication: EPILEPSY
     Dosage: 1 G DAILY

REACTIONS (2)
  - GRAND MAL CONVULSION [None]
  - SPINAL COMPRESSION FRACTURE [None]
